FAERS Safety Report 6456542-0 (Version None)
Quarter: 2009Q4

REPORT INFORMATION
  Report Type: 
  Country: None (occurrence: None)
  Receive Date: 20091120
  Receipt Date: 20091116
  Transmission Date: 20100525
  Serious: Yes (Life-Threatening, Hospitalization)
  Sender: FDA-Public Use
  Company Number: 09US005053

PATIENT
  Age: 14 Day
  Sex: Female

DRUGS (1)
  1. LOPERAMIDE HYDROCHLORIDE   ORAL LIQUID [Suspect]
     Indication: DIARRHOEA
     Dosage: 1 MG, FOLLOWED BY SECOND DOSE OF 1 MG 7 HOURS LATER, ORAL
     Route: 048

REACTIONS (9)
  - APNOEIC ATTACK [None]
  - COMA [None]
  - CONTRAINDICATION TO MEDICAL TREATMENT [None]
  - ILEUS [None]
  - LETHARGY [None]
  - LOSS OF CONSCIOUSNESS [None]
  - OVERDOSE [None]
  - RESPIRATORY DEPRESSION [None]
  - UNRESPONSIVE TO STIMULI [None]
